FAERS Safety Report 21385858 (Version 1)
Quarter: 2022Q3

REPORT INFORMATION
  Report Type: Spontaneous
  Country: US (occurrence: None)
  Receive Date: 20220927
  Receipt Date: 20220927
  Transmission Date: 20221026
  Serious: Yes (Hospitalization)
  Sender: FDA-Public Use
  Company Number: None

PATIENT
  Age: 61 Year
  Sex: Female

DRUGS (1)
  1. METOPROLOL SUCCINATE [Suspect]
     Active Substance: METOPROLOL SUCCINATE
     Indication: Heart rate irregular
     Dates: start: 20200205, end: 20200226

REACTIONS (13)
  - Impaired driving ability [None]
  - Blood glucose increased [None]
  - Pyrexia [None]
  - Mental status changes [None]
  - Blood lactic acid increased [None]
  - Hypoglycaemia [None]
  - Tachycardia [None]
  - Type 1 diabetes mellitus [None]
  - Alcohol use [None]
  - Hypothyroidism [None]
  - Depression [None]
  - Blood ethanol increased [None]
  - Laboratory test interference [None]

NARRATIVE: CASE EVENT DATE: 20200225
